FAERS Safety Report 5004575-3 (Version None)
Quarter: 2006Q2

REPORT INFORMATION
  Report Type: 
  Country: None (occurrence: None)
  Receive Date: 20060512
  Receipt Date: 20060501
  Transmission Date: 20061013
  Serious: Yes (Other)
  Sender: FDA-Public Use
  Company Number: 2006016598

PATIENT
  Age: 42 Year
  Sex: Male
  Weight: 83.9154 kg

DRUGS (2)
  1. AZITHROMYCIN [Suspect]
     Indication: COUGH
     Dosage: 500 MG (250 MG, EVERY DAY), ORAL
     Route: 048
     Dates: start: 20060130, end: 20060131
  2. AZITHROMYCIN [Suspect]
     Indication: NASOPHARYNGITIS
     Dosage: 500 MG (250 MG, EVERY DAY), ORAL
     Route: 048
     Dates: start: 20060130, end: 20060131

REACTIONS (14)
  - BLOOD PRESSURE DIASTOLIC INCREASED [None]
  - BLOOD PRESSURE INCREASED [None]
  - CHEST PAIN [None]
  - DECREASED APPETITE [None]
  - DEHYDRATION [None]
  - DRY MOUTH [None]
  - DYSPNOEA [None]
  - FEELING HOT [None]
  - LIP DRY [None]
  - NASAL DISORDER [None]
  - SWELLING [None]
  - SWELLING FACE [None]
  - VEIN DISORDER [None]
  - WHEEZING [None]
